FAERS Safety Report 8595215-5 (Version None)
Quarter: 2012Q3

REPORT INFORMATION
  Report Type: 
  Country: None (occurrence: None)
  Receive Date: 20120815
  Receipt Date: 20120807
  Transmission Date: 20120928
  Serious: No
  Sender: FDA-Public Use
  Company Number: US-BAYER-2012-082498

PATIENT
  Sex: Female

DRUGS (4)
  1. IBUPROFEN [Concomitant]
  2. COUGH DROPS [Concomitant]
  3. TEA TREE OIL [Concomitant]
  4. ALEVE (CAPLET) [Suspect]
     Indication: TOOTHACHE
     Route: 048

REACTIONS (1)
  - TOOTHACHE [None]
